FAERS Safety Report 4603672-1 (Version None)
Quarter: 2005Q1

REPORT INFORMATION
  Report Type: 
  Country: None (occurrence: None)
  Receive Date: 20050310
  Receipt Date: 20050228
  Transmission Date: 20050727
  Serious: Yes (Death, Other)
  Sender: FDA-Public Use
  Company Number: GB-BRISTOL-MYERS SQUIBB COMPANY-12878252

PATIENT
  Age: 29 Year
  Sex: Male

DRUGS (6)
  1. STAVUDINE [Suspect]
     Indication: HIV INFECTION
     Route: 048
     Dates: end: 20050107
  2. VIREAD [Suspect]
     Indication: HIV INFECTION
     Route: 048
     Dates: end: 20050107
  3. LOPINAVIR [Suspect]
     Indication: HIV INFECTION
     Route: 048
     Dates: end: 20050107
  4. COTRIM [Concomitant]
     Indication: PROPHYLAXIS
     Route: 048
     Dates: end: 20050129
  5. RISPERIDONE [Concomitant]
     Indication: PSYCHOTIC DISORDER
     Route: 048
     Dates: end: 20050126
  6. OMEPRAZOLE [Concomitant]
     Indication: PAIN
     Route: 048
     Dates: end: 20050110

REACTIONS (5)
  - ABDOMINAL PAIN [None]
  - ELECTROMECHANICAL DISSOCIATION [None]
  - HEPATIC STEATOSIS [None]
  - LACTIC ACIDOSIS [None]
  - PANCREATITIS [None]
